FAERS Safety Report 16950751 (Version 1)
Quarter: 2019Q4

REPORT INFORMATION
  Report Type: Spontaneous
  Country: GB (occurrence: GB)
  Receive Date: 20191023
  Receipt Date: 20191023
  Transmission Date: 20200122
  Serious: Yes (Other)
  Sender: FDA-Public Use
  Company Number: GB-PFIZER INC-2019450219

PATIENT
  Age: 32 Year
  Sex: Male

DRUGS (1)
  1. ANADIN ULTRA [Suspect]
     Active Substance: IBUPROFEN
     Dosage: UNK

REACTIONS (3)
  - Haemorrhage [Unknown]
  - Product package associated injury [Unknown]
  - Limb injury [Unknown]

NARRATIVE: CASE EVENT DATE: 20191016
